FAERS Safety Report 10203783 (Version 2)
Quarter: 2014Q2

REPORT INFORMATION
  Report Type: Spontaneous
  Country: US (occurrence: None)
  Receive Date: 20140523
  Receipt Date: 20140602
  Transmission Date: 20141212
  Serious: Yes (Other)
  Sender: FDA-Public Use
  Company Number: LEVE20140008

PATIENT
  Age: 29 Year
  Sex: Female

DRUGS (1)
  1. LEVETIRACETAM [Suspect]
     Indication: IDIOPATHIC GENERALISED EPILEPSY
     Route: 048

REACTIONS (4)
  - Convulsion [None]
  - Maternal exposure during pregnancy [None]
  - Paradoxical drug reaction [None]
  - Condition aggravated [None]
